FAERS Safety Report 24646632 (Version 1)
Quarter: 2024Q4

REPORT INFORMATION
  Report Type: Spontaneous
  Country: AU (occurrence: AU)
  Receive Date: 20241121
  Receipt Date: 20241121
  Transmission Date: 20250115
  Serious: Yes (Other)
  Sender: CIPLA
  Company Number: AU-CIPLA LTD.-2024AU13240

PATIENT

DRUGS (1)
  1. ALBUTEROL [Suspect]
     Active Substance: ALBUTEROL
     Indication: Product used for unknown indication
     Dosage: UNK, INHALATION POWDER

REACTIONS (6)
  - Hypoxia [Unknown]
  - Fatigue [Unknown]
  - Extra dose administered [Unknown]
  - Product label confusion [Unknown]
  - Product use issue [Unknown]
  - Wrong technique in device usage process [Unknown]
